FAERS Safety Report 16990520 (Version 1)
Quarter: 2019Q4

REPORT INFORMATION
  Report Type: Spontaneous
  Country: US (occurrence: US)
  Receive Date: 20190920
  Receipt Date: 20190920
  Transmission Date: 20200122
  Serious: No
  Sender: FDA-Public Use
  Company Number: None

PATIENT
  Age: 73 Year
  Sex: Female
  Weight: 56.7 kg

DRUGS (2)
  1. DIOVAN HCT [Suspect]
     Active Substance: HYDROCHLOROTHIAZIDE\VALSARTAN
     Indication: CORONARY ARTERY DISEASE
     Dosage: ?          OTHER DOSE:160/12.5MG;?
     Route: 048
     Dates: start: 201809
  2. DIOVAN HCT [Suspect]
     Active Substance: HYDROCHLOROTHIAZIDE\VALSARTAN
     Indication: HYPERTENSION
     Dosage: ?          OTHER DOSE:160/12.5MG;?
     Route: 048
     Dates: start: 201809

REACTIONS (1)
  - Product use complaint [None]
